FAERS Safety Report 4690499-8 (Version None)
Quarter: 2005Q2

REPORT INFORMATION
  Report Type: 
  Country: None (occurrence: None)
  Receive Date: 20050615
  Receipt Date: 20050314
  Transmission Date: 20051028
  Serious: Yes (Death)
  Sender: FDA-Public Use
  Company Number: US-MERCK-0503USA02981

PATIENT
  Sex: Male
  Weight: 66 kg

DRUGS (6)
  1. VIOXX [Suspect]
     Indication: ARTHRITIS
     Route: 048
     Dates: start: 20021007, end: 20030302
  2. NORVASC [Concomitant]
     Indication: BLOOD PRESSURE
     Route: 065
     Dates: start: 20011121, end: 20030302
  3. ALLEGRA [Concomitant]
     Indication: HYPERSENSITIVITY
     Route: 065
  4. WELLBUTRIN [Concomitant]
     Indication: DEPRESSION
     Route: 065
     Dates: start: 20011101, end: 20030302
  5. TRAZODONE HYDROCHLORIDE [Concomitant]
     Route: 065
  6. ASPIRIN [Concomitant]
     Route: 065

REACTIONS (5)
  - ACUTE MYOCARDIAL INFARCTION [None]
  - ANHEDONIA [None]
  - ANXIETY [None]
  - EMOTIONAL DISTRESS [None]
  - PAIN [None]
